FAERS Safety Report 4575087-6 (Version None)
Quarter: 2005Q1

REPORT INFORMATION
  Report Type: 
  Country: None (occurrence: None)
  Receive Date: 20050208
  Receipt Date: 20000704
  Transmission Date: 20050727
  Serious: Yes (Hospitalization)
  Sender: FDA-Public Use
  Company Number: TH-GLAXOSMITHKLINE-B0369143A

PATIENT
  Age: 65 Year
  Sex: Female
  Weight: 63 kg

DRUGS (5)
  1. AVANDIA [Suspect]
     Dosage: 4MG PER DAY
     Route: 065
     Dates: start: 20000505, end: 20000621
  2. HUMAN INTERMEDIATE/LONG-ACTING INSULIN [Concomitant]
     Route: 058
  3. METFORMIN HCL [Concomitant]
     Dosage: 500MG SEE DOSAGE TEXT
     Route: 065
  4. ASPIRIN [Concomitant]
     Indication: ILL-DEFINED DISORDER
     Dosage: 100MG PER DAY
     Route: 065
  5. FENOFIBRATE [Concomitant]
     Dosage: 200MG PER DAY
     Route: 065

REACTIONS (3)
  - ANAEMIA [None]
  - BLOOD CREATINE INCREASED [None]
  - BLOOD UREA INCREASED [None]
